FAERS Safety Report 7768030 (Version 9)
Quarter: 2014Q3

REPORT INFORMATION
  Report Type: Report from Study
  Country: US (occurrence: US)
  Receive Date: 20110121
  Receipt Date: 20140826
  Transmission Date: 20150326
  Serious: Yes (Hospitalization, Other)
  Sender: FDA-Public Use
  Company Number: US-BIOGENIDEC-2011BI001630

PATIENT
  Sex: Female

DRUGS (13)
  1. AVONEX [Suspect]
     Active Substance: INTERFERON BETA-1A
     Indication: MULTIPLE SCLEROSIS
     Route: 030
     Dates: start: 20111113, end: 20131001
  2. POTASSIUM [Concomitant]
     Active Substance: POTASSIUM
  3. PREMARIN [Concomitant]
     Active Substance: ESTROGENS, CONJUGATED
  4. VIIBRYD [Concomitant]
     Active Substance: VILAZODONE HYDROCHLORIDE
  5. AVONEX [Suspect]
     Active Substance: INTERFERON BETA-1A
     Indication: MULTIPLE SCLEROSIS
     Route: 030
     Dates: start: 19960619, end: 20010620
  6. ALEVE [Concomitant]
     Active Substance: NAPROXEN SODIUM
  7. LASIX [Concomitant]
     Active Substance: FUROSEMIDE
  8. AVONEX [Suspect]
     Active Substance: INTERFERON BETA-1A
     Indication: MULTIPLE SCLEROSIS
     Route: 030
     Dates: start: 20090914, end: 20101201
  9. ASPIRIN. [Concomitant]
     Active Substance: ASPIRIN
  10. SIMVASTATIN. [Concomitant]
     Active Substance: SIMVASTATIN
  11. SYNTHROID [Concomitant]
     Active Substance: LEVOTHYROXINE SODIUM
  12. TYLENOL EXTRA STRENGTH [Concomitant]
     Active Substance: ACETAMINOPHEN
  13. VITAMIN D3 [Concomitant]
     Active Substance: CHOLECALCIFEROL

REACTIONS (3)
  - Upper respiratory tract infection [Not Recovered/Not Resolved]
  - Small cell carcinoma [Recovered/Resolved]
  - Malignant neoplasm of unknown primary site [Recovered/Resolved]

NARRATIVE: CASE EVENT DATE: 2005
